FAERS Safety Report 5121213-X (Version None)
Quarter: 2006Q4

REPORT INFORMATION
  Report Type: 
  Country: None (occurrence: None)
  Receive Date: 20061002
  Receipt Date: 20060918
  Transmission Date: 20070319
  Serious: Yes (Hospitalization)
  Sender: FDA-Public Use
  Company Number: CERZ-11086

PATIENT
  Age: 24 Month
  Sex: Male
  Weight: 10.4327 kg

DRUGS (2)
  1. CEREZYME [Suspect]
     Indication: GAUCHER'S DISEASE
     Dosage: 400 UNITS Q2WKS IV
     Route: 042
     Dates: start: 20060201
  2. CEREZYME [Suspect]
     Indication: GAUCHER'S DISEASE
     Dosage: 400 UNITS Q2WKS IV
     Route: 042
     Dates: start: 20050316, end: 20051006

REACTIONS (3)
  - CATHETER SITE CELLULITIS [None]
  - CELLULITIS STAPHYLOCOCCAL [None]
  - STAPHYLOCOCCAL BACTERAEMIA [None]
